FAERS Safety Report 5645387-7 (Version None)
Quarter: 2008Q1

REPORT INFORMATION
  Report Type: 
  Country: None (occurrence: None)
  Receive Date: 20080229
  Receipt Date: 20080226
  Transmission Date: 20080703
  Serious: Yes (Other)
  Sender: FDA-Public Use
  Company Number: US-MERCK-0802USA01065

PATIENT
  Age: 75 Year
  Sex: Male
  Weight: 103 kg

DRUGS (1)
  1. JANUVIA [Suspect]
     Indication: TYPE 2 DIABETES MELLITUS
     Route: 048
     Dates: start: 20071106

REACTIONS (1)
  - ACUTE PROMYELOCYTIC LEUKAEMIA [None]
